FAERS Safety Report 22186439 (Version 2)
Quarter: 2023Q2

REPORT INFORMATION
  Report Type: Spontaneous
  Country: US (occurrence: US)
  Receive Date: 20230407
  Receipt Date: 20230502
  Transmission Date: 20230721
  Serious: Yes (Other)
  Sender: FDA-Public Use
  Company Number: US-Calliditas-2023CAL00298

PATIENT
  Age: 76 Year
  Sex: Male

DRUGS (1)
  1. TARPEYO [Suspect]
     Active Substance: BUDESONIDE
     Indication: Haematuria
     Dosage: 16 MG (4 MG CASPULES) ONCE DAILY
     Route: 048
     Dates: start: 20230224, end: 20230424

REACTIONS (2)
  - Hypertensive urgency [Not Recovered/Not Resolved]
  - Aortic disorder [Not Recovered/Not Resolved]
